FAERS Safety Report 21858239 (Version 1)
Quarter: 2023Q1

REPORT INFORMATION
  Report Type: Spontaneous
  Country: ES (occurrence: ES)
  Receive Date: 20230113
  Receipt Date: 20230113
  Transmission Date: 20230418
  Serious: Yes (Other)
  Sender: FDA-Public Use
  Company Number: ES-AEMPS-1311525

PATIENT
  Age: 70 Year
  Sex: Female

DRUGS (4)
  1. DEXKETOPROFEN [Suspect]
     Active Substance: DEXKETOPROFEN
     Indication: Pain
     Dosage: 25 MILLIGRAM, 3 TIMES A DAY(25MG /8H)
     Route: 042
     Dates: start: 20220312, end: 20220318
  2. PANTOPRAZOLE [Suspect]
     Active Substance: PANTOPRAZOLE
     Indication: Prophylaxis
     Dosage: 40 MILLIGRAM, ONCE A DAY(40 MG)
     Route: 042
     Dates: start: 20220310, end: 20220318
  3. CEFAZOLIN SODIUM [Suspect]
     Active Substance: CEFAZOLIN SODIUM
     Indication: Osteomyelitis
     Dosage: 2 GRAM, 3 TIMES A DAY
     Route: 042
     Dates: start: 20220310, end: 20220318
  4. CLOXACILLIN [Suspect]
     Active Substance: CLOXACILLIN
     Indication: Osteomyelitis
     Dosage: 2 GRAM, EVERY FOUR HOUR(2GR/4H)
     Route: 042
     Dates: start: 20220311, end: 20220315

REACTIONS (1)
  - Mixed liver injury [Recovered/Resolved]

NARRATIVE: CASE EVENT DATE: 20220314
